FAERS Safety Report 21580389 (Version 3)
Quarter: 2023Q2

REPORT INFORMATION
  Report Type: Spontaneous
  Country: US (occurrence: US)
  Receive Date: 20221110
  Receipt Date: 20230520
  Transmission Date: 20230722
  Serious: Yes (Other)
  Sender: FDA-Public Use
  Company Number: US-002147023-NVSC2022US249975

PATIENT
  Sex: Female

DRUGS (2)
  1. ENTRESTO [Suspect]
     Active Substance: SACUBITRIL\VALSARTAN
     Indication: Product used for unknown indication
     Dosage: UNK (JUST STARTED ONE MONTH AGO)
     Route: 065
  2. ENTRESTO [Suspect]
     Active Substance: SACUBITRIL\VALSARTAN
     Dosage: UNK
     Route: 065

REACTIONS (7)
  - Ejection fraction decreased [Not Recovered/Not Resolved]
  - Tinnitus [Unknown]
  - Procedural complication [Unknown]
  - Feeling abnormal [Unknown]
  - Blood glucose increased [Unknown]
  - Hypertension [Unknown]
  - Fatigue [Unknown]
